FAERS Safety Report 4485020-3 (Version None)
Quarter: 2004Q3

REPORT INFORMATION
  Report Type: 
  Country: None (occurrence: None)
  Receive Date: 20040921
  Receipt Date: 20030902
  Transmission Date: 20050211
  Serious: Yes (Hospitalization)
  Sender: FDA-Public Use
  Company Number: 163-20785-03090367

PATIENT
  Age: 65 Year
  Sex: Male

DRUGS (7)
  1. THALOMID [Suspect]
     Indication: MULTIPLE MYELOMA
     Dosage: 100 MG, QD, ORAL; SEE IMAGE
     Route: 048
     Dates: start: 19991201
  2. THALOMID [Suspect]
     Indication: MULTIPLE MYELOMA
     Dosage: 100 MG, QD, ORAL; SEE IMAGE
     Route: 048
     Dates: start: 20021028
  3. INTERFERON ALPHA-2B           (INTERFERON ALFA-2B) [Suspect]
     Dosage: 3 MU, TIW, SUBCUTANEOUS
     Route: 058
     Dates: start: 20020520, end: 20030517
  4. DEXAMETHASONE [Suspect]
     Dosage: 40 MG, QD, INTRAVENOUS; SEE IMAGE
     Route: 042
     Dates: start: 20020101
  5. DEXAMETHASONE [Suspect]
     Dosage: 40 MG, QD, INTRAVENOUS; SEE IMAGE
     Route: 042
     Dates: start: 20020401
  6. DEXAMETHASONE [Suspect]
     Dosage: 40 MG, QD, INTRAVENOUS; SEE IMAGE
     Route: 042
     Dates: start: 20020701
  7. DEXAMETHASONE [Suspect]
     Dosage: 40 MG, QD, INTRAVENOUS; SEE IMAGE
     Route: 042
     Dates: start: 20021017

REACTIONS (14)
  - ASTHENIA [None]
  - BALANCE DISORDER [None]
  - CHEST X-RAY ABNORMAL [None]
  - CHILLS [None]
  - DECREASED APPETITE [None]
  - DIARRHOEA [None]
  - INFLUENZA LIKE ILLNESS [None]
  - LETHARGY [None]
  - MUSCLE CRAMP [None]
  - MYALGIA [None]
  - NAUSEA [None]
  - PYREXIA [None]
  - SINUSITIS [None]
  - VOMITING [None]
